FAERS Safety Report 4553623-3 (Version None)
Quarter: 2004Q4

REPORT INFORMATION
  Report Type: 
  Country: None (occurrence: None)
  Receive Date: 20041227
  Receipt Date: 20041019
  Transmission Date: 20050328
  Serious: No
  Sender: FDA-Public Use
  Company Number: 04P-163-0277851-00

PATIENT
  Age: 68 Year
  Sex: Male
  Weight: 94.3482 kg

DRUGS (8)
  1. HUMIRA [Suspect]
     Indication: RHEUMATOID ARTHRITIS
     Dosage: 40 MG, 1 IN 2 WK, SUBCUTANEOUS
     Route: 058
     Dates: start: 20040701
  2. MULTI-VITAMINS [Concomitant]
  3. OMEPRAZOLE [Concomitant]
  4. BENAZEPRIL HCL [Concomitant]
  5. FINASTERIDE [Concomitant]
  6. FOLIC ACID [Concomitant]
  7. MELOXICAM [Concomitant]
  8. FLUVASTATIN SODIUM [Concomitant]

REACTIONS (2)
  - PRURITUS [None]
  - RASH [None]
